FAERS Safety Report 5888232-7 (Version None)
Quarter: 2008Q3

REPORT INFORMATION
  Report Type: 
  Country: None (occurrence: None)
  Receive Date: 20080916
  Receipt Date: 20080916
  Transmission Date: 20090109
  Serious: Yes (Other)
  Sender: FDA-Public Use
  Company Number: None

PATIENT
  Sex: Female
  Weight: 74.8435 kg

DRUGS (1)
  1. BONIVA [Suspect]
     Indication: OSTEOPOROSIS
     Dosage: 1 PILL ONE A  MONTH
     Dates: start: 20080914, end: 20080914

REACTIONS (6)
  - BACK PAIN [None]
  - DIARRHOEA [None]
  - MOVEMENT DISORDER [None]
  - PAIN IN EXTREMITY [None]
  - PARAESTHESIA [None]
  - SOMNOLENCE [None]
